FAERS Safety Report 24804808 (Version 4)
Quarter: 2025Q1

REPORT INFORMATION
  Report Type: Spontaneous
  Country: US (occurrence: US)
  Receive Date: 20250103
  Receipt Date: 20250321
  Transmission Date: 20250408
  Serious: Yes (Hospitalization, Other)
  Sender: DOMPE FARMACEUTICI
  Company Number: US-FARMAPROD-202412-4324

PATIENT
  Sex: Female

DRUGS (3)
  1. OXERVATE [Suspect]
     Active Substance: CENEGERMIN-BKBJ
     Indication: Neurotrophic keratopathy
     Route: 047
     Dates: start: 20250114, end: 20250121
  2. OXERVATE [Suspect]
     Active Substance: CENEGERMIN-BKBJ
     Route: 047
  3. OXERVATE [Suspect]
     Active Substance: CENEGERMIN-BKBJ
     Route: 047

REACTIONS (7)
  - Clostridium difficile infection [Unknown]
  - Pneumonia [Unknown]
  - Hospitalisation [Recovered/Resolved]
  - Pulmonary oedema [Unknown]
  - Therapy interrupted [Unknown]
  - Blood pressure decreased [Unknown]
  - Cardiac disorder [Unknown]
